FAERS Safety Report 4570914-0 (Version None)
Quarter: 2005Q1

REPORT INFORMATION
  Report Type: 
  Country: None (occurrence: None)
  Receive Date: 20050204
  Receipt Date: 20041124
  Transmission Date: 20050727
  Serious: Yes (Other)
  Sender: FDA-Public Use
  Company Number: BE-MERCK-0412BEL00002

PATIENT
  Age: 52 Year
  Sex: Male
  Weight: 70 kg

DRUGS (5)
  1. ZOCOR [Suspect]
     Indication: HYPERCHOLESTEROLAEMIA
     Route: 048
     Dates: start: 20040101, end: 20040101
  2. ZOCOR [Suspect]
     Route: 048
     Dates: start: 20050124
  3. ACENOCOUMAROL [Concomitant]
     Indication: ATRIAL FIBRILLATION
     Route: 048
     Dates: start: 19960101
  4. AMIODARONE HYDROCHLORIDE [Concomitant]
     Indication: ATRIAL FIBRILLATION
     Route: 048
     Dates: start: 19960101
  5. FLECAINIDE ACETATE [Concomitant]
     Indication: ATRIAL FIBRILLATION
     Route: 048
     Dates: start: 19960101

REACTIONS (8)
  - ABDOMINAL PAIN [None]
  - ALANINE AMINOTRANSFERASE INCREASED [None]
  - ASPARTATE AMINOTRANSFERASE INCREASED [None]
  - BACK PAIN [None]
  - BLOOD CREATINE PHOSPHOKINASE INCREASED [None]
  - GAMMA-GLUTAMYLTRANSFERASE INCREASED [None]
  - HEPATIC ENZYME INCREASED [None]
  - PAIN IN EXTREMITY [None]
